FAERS Safety Report 4844698-2 (Version None)
Quarter: 2005Q4

REPORT INFORMATION
  Report Type: 
  Country: None (occurrence: None)
  Receive Date: 20051201
  Receipt Date: 20051201
  Transmission Date: 20060501
  Serious: Yes (Other)
  Sender: FDA-Public Use
  Company Number: None

PATIENT
  Age: 72 Year
  Sex: Female
  Weight: 63.5036 kg

DRUGS (2)
  1. VISIPAQUE 320 [Suspect]
     Indication: CORONARY ARTERY DISEASE
     Dosage: 130 ML
     Dates: start: 20051129
  2. VISIPAQUE 320 [Suspect]
     Indication: CORONARY ARTERY DISEASE
     Dosage: 30 ML
     Dates: start: 20051129

REACTIONS (5)
  - ERYTHEMA [None]
  - EYE SWELLING [None]
  - FEELING ABNORMAL [None]
  - HOT FLUSH [None]
  - POST PROCEDURAL COMPLICATION [None]
